FAERS Safety Report 10063466 (Version 1)
Quarter: 2014Q1

REPORT INFORMATION
  Report Type: Spontaneous
  Country: US (occurrence: None)
  Receive Date: 20140327
  Receipt Date: 20140327
  Transmission Date: 20141002
  Serious: Yes (Other)
  Sender: FDA-Public Use
  Company Number: GR 13-014

PATIENT
  Age: 49 Year
  Sex: Female

DRUGS (2)
  1. ALLERGENIC EXTRACTS [Suspect]
     Indication: HYPERSENSITIVITY
  2. ALLERGENIC EXTRACTS [Suspect]

REACTIONS (4)
  - Injection site reaction [None]
  - Pain in extremity [None]
  - Erythema [None]
  - Necrosis [None]
